FAERS Safety Report 24680259 (Version 2)
Quarter: 2025Q3

REPORT INFORMATION
  Report Type: Spontaneous
  Country: EU (occurrence: EU)
  Receive Date: 20241129
  Receipt Date: 20250804
  Transmission Date: 20251021
  Serious: Yes (Death)
  Sender: JOHNSON AND JOHNSON
  Company Number: EU-JNJFOC-20241164408

PATIENT
  Age: 41 Year
  Sex: Female

DRUGS (5)
  1. REMICADE [Suspect]
     Active Substance: INFLIXIMAB
     Indication: Immune-mediated lung disease
     Route: 041
  2. BEVACIZUMAB [Suspect]
     Active Substance: BEVACIZUMAB
  3. CARBOPLATIN [Suspect]
     Active Substance: CARBOPLATIN
     Indication: Cervix carcinoma
  4. PACLITAXEL [Suspect]
     Active Substance: PACLITAXEL
     Indication: Cervix carcinoma
  5. PEMBROLIZUMAB [Suspect]
     Active Substance: PEMBROLIZUMAB
     Indication: Cervix carcinoma

REACTIONS (2)
  - Immune-mediated lung disease [Fatal]
  - Off label use [Unknown]
